FAERS Safety Report 13179097 (Version 2)
Quarter: 2017Q1

REPORT INFORMATION
  Report Type: Other
  Country: SE (occurrence: SE)
  Receive Date: 20170202
  Receipt Date: 20170209
  Transmission Date: 20170428
  Serious: Yes (Other)
  Sender: FDA-Public Use
  Company Number: SE-ASTELLAS-2017US003666

PATIENT
  Age: 77 Year
  Sex: Female

DRUGS (9)
  1. LOSARTAN BLUEFISH [Concomitant]
     Active Substance: LOSARTAN
     Indication: PRODUCT USED FOR UNKNOWN INDICATION
     Route: 065
  2. OMEPRAZOL MYLAN [Concomitant]
     Active Substance: OMEPRAZOLE
     Indication: PRODUCT USED FOR UNKNOWN INDICATION
     Dosage: UNK UNK, UNKNOWN FREQ.
     Route: 065
  3. DETREMIN [Concomitant]
     Indication: PRODUCT USED FOR UNKNOWN INDICATION
     Dosage: 20000 IE/ML, UNKNOWN FREQ.
     Route: 065
  4. OVESTERIN [Concomitant]
     Active Substance: ESTRIOL
     Indication: PRODUCT USED FOR UNKNOWN INDICATION
     Dosage: UNK UNK, UNKNOWN FREQ.
     Route: 065
  5. ELOCON [Concomitant]
     Active Substance: MOMETASONE FUROATE
     Indication: PRODUCT USED FOR UNKNOWN INDICATION
     Dosage: UNK UNK, UNKNOWN FREQ.
     Route: 065
  6. BETMIGA [Suspect]
     Active Substance: MIRABEGRON
     Dosage: UNK UNK, EVERY OTHER DAY (REDUCED DOSE)
     Route: 065
  7. LEVAXIN [Concomitant]
     Active Substance: LEVOTHYROXINE SODIUM
     Indication: PRODUCT USED FOR UNKNOWN INDICATION
     Route: 065
  8. DERMOVAT                           /00337102/ [Concomitant]
     Indication: PRODUCT USED FOR UNKNOWN INDICATION
     Dosage: 0.5MG/ML, UNKNOWN FREQ.
     Route: 065
  9. BETMIGA [Suspect]
     Active Substance: MIRABEGRON
     Indication: INCONTINENCE
     Route: 065
     Dates: start: 20150902

REACTIONS (6)
  - Hypertension [Recovered/Resolved]
  - Asthenopia [Unknown]
  - Incorrect dose administered [Unknown]
  - Dry mouth [Unknown]
  - Goitre [Recovered/Resolved]
  - Dizziness [Recovered/Resolved]

NARRATIVE: CASE EVENT DATE: 20150902
